FAERS Safety Report 7072060-3 (Version None)
Quarter: 2010Q4

REPORT INFORMATION
  Report Type: 
  Country: None (occurrence: None)
  Receive Date: 20101029
  Receipt Date: 20091125
  Transmission Date: 20110411
  Serious: No
  Sender: FDA-Public Use
  Company Number: A0832020A

PATIENT
  Age: 61 Year
  Sex: Female

DRUGS (3)
  1. ADVAIR DISKUS 100/50 [Suspect]
     Indication: TUBERCULOSIS
     Route: 055
     Dates: start: 20080501
  2. ACTONEL [Concomitant]
  3. VITAMINS [Concomitant]

REACTIONS (3)
  - JOINT CREPITATION [None]
  - MUSCLE TIGHTNESS [None]
  - PAIN IN JAW [None]
